FAERS Safety Report 4527167-9 (Version None)
Quarter: 2004Q4

REPORT INFORMATION
  Report Type: 
  Country: None (occurrence: None)
  Receive Date: 20041126
  Receipt Date: 20040527
  Transmission Date: 20050328
  Serious: Yes (Other)
  Sender: FDA-Public Use
  Company Number: 2004215824US

PATIENT

DRUGS (1)
  1. ZYVOX [Suspect]
     Indication: ENDOCARDITIS

REACTIONS (1)
  - THROMBOCYTOPENIA [None]
